FAERS Safety Report 5030458-9 (Version None)
Quarter: 2006Q2

REPORT INFORMATION
  Report Type: 
  Country: None (occurrence: None)
  Receive Date: 20060614
  Receipt Date: 20060601
  Transmission Date: 20061013
  Serious: Yes (Hospitalization, Other)
  Sender: FDA-Public Use
  Company Number: HQWYE737901MAR05

PATIENT
  Age: 18 Year
  Sex: Female

DRUGS (5)
  1. RAPAMUNE [Suspect]
     Indication: IMMUNOSUPPRESSANT DRUG THERAPY
     Dosage: 2 MG 1X PER 1 DAY ORAL
     Route: 048
     Dates: start: 20050119, end: 20050601
  2. RAPAMUNE [Suspect]
     Indication: PROPHYLAXIS AGAINST TRANSPLANT REJECTION
     Dosage: 2 MG 1X PER 1 DAY ORAL
     Route: 048
     Dates: start: 20050119, end: 20050601
  3. BACTRIM [Concomitant]
  4. RANITIDINE [Concomitant]
  5. DIANE - 35 (CYPROTERONE ACETATE/ETHINYLESTRADIOL) [Concomitant]

REACTIONS (3)
  - DIALYSIS [None]
  - DRUG INEFFECTIVE [None]
  - TRANSPLANT REJECTION [None]
